FAERS Safety Report 4472935-5 (Version None)
Quarter: 2004Q4

REPORT INFORMATION
  Report Type: 
  Country: None (occurrence: None)
  Receive Date: 20041012
  Receipt Date: 20041012
  Transmission Date: 20050328
  Serious: Yes (Other)
  Sender: FDA-Public Use
  Company Number: None

PATIENT
  Age: 56 Year
  Sex: Male
  Weight: 88.5 kg

DRUGS (2)
  1. CEFEPIME [Suspect]
     Indication: PSEUDOMONAS INFECTION
     Dosage: 2G, 1G Q12 H               IV
     Route: 042
     Dates: start: 20040806, end: 20040816
  2. CEFEPIME [Suspect]
     Indication: URINARY TRACT INFECTION
     Dosage: 2G, 1G Q12 H               IV
     Route: 042
     Dates: start: 20040806, end: 20040816

REACTIONS (1)
  - RASH [None]
